FAERS Safety Report 9375558 (Version 3)
Quarter: 2014Q3

REPORT INFORMATION
  Report Type: Spontaneous
  Country: US (occurrence: US)
  Receive Date: 20130628
  Receipt Date: 20140908
  Transmission Date: 20150326
  Serious: Yes (Hospitalization, Disabling, Other)
  Sender: FDA-Public Use
  Company Number: US-009507513-1306USA013041

PATIENT
  Sex: Female
  Weight: 67.8 kg

DRUGS (3)
  1. NUVARING [Suspect]
     Active Substance: ETHINYL ESTRADIOL\ETONOGESTREL
     Dosage: UNK
     Route: 067
  2. NUVARING [Suspect]
     Active Substance: ETHINYL ESTRADIOL\ETONOGESTREL
     Indication: CONTRACEPTION
     Dosage: UNK
     Route: 067
     Dates: start: 200906, end: 20090622
  3. MACROBID [Concomitant]
     Active Substance: NITROFURANTOIN\NITROFURANTOIN MONOHYDRATE
     Indication: PRODUCT USED FOR UNKNOWN INDICATION
     Dosage: 100 MG, BID
     Route: 048

REACTIONS (13)
  - Pyrexia [Unknown]
  - Pulmonary embolism [Unknown]
  - Migraine [Unknown]
  - Anxiety [Unknown]
  - Oropharyngeal pain [Unknown]
  - Nephrolithiasis [Unknown]
  - Renal stone removal [Unknown]
  - Renal stone removal [Unknown]
  - Gastrooesophageal reflux disease [Unknown]
  - Appendicectomy [Unknown]
  - Cholecystectomy [Unknown]
  - Fall [Unknown]
  - Vascular injury [Unknown]

NARRATIVE: CASE EVENT DATE: 200906
